FAERS Safety Report 5661202-X (Version None)
Quarter: 2008Q1

REPORT INFORMATION
  Report Type: 
  Country: None (occurrence: None)
  Receive Date: 20080312
  Receipt Date: 20080228
  Transmission Date: 20080703
  Serious: Yes (Hospitalization, Other)
  Sender: FDA-Public Use
  Company Number: KR-RANBAXY-2008RR-13378

PATIENT

DRUGS (7)
  1. ASPIRIN [Suspect]
     Indication: KAWASAKI'S DISEASE
     Dosage: 5 MG/KG, QD
  2. IBUPROFEN TABLETS BP 200MG [Suspect]
     Indication: JUVENILE ARTHRITIS
     Dosage: 8-10 MG/KG
  3. ABCIXIMAB [Concomitant]
     Dosage: 0.25 MG/KG, UNK
  4. ABCIXIMAB [Concomitant]
     Dosage: 0.125 UG/KG, UNK
  5. HEPARIN [Concomitant]
  6. WARFARIN SODIUM [Concomitant]
  7. CLOPIDOGREL [Concomitant]
     Dosage: 1 MG/KG, QD

REACTIONS (2)
  - CORONARY ARTERY OCCLUSION [None]
  - DRUG INTERACTION [None]
